FAERS Safety Report 9043205 (Version 1)
Quarter: 2013Q1

REPORT INFORMATION
  Report Type: Report from Study
  Country: US (occurrence: US)
  Receive Date: 20130129
  Receipt Date: 20130129
  Transmission Date: 20140127
  Serious: No
  Sender: FDA-Public Use
  Company Number: US-ABBOTT-12P-163-0914315-00

PATIENT
  Age: 70 Year
  Sex: Female

DRUGS (19)
  1. HUMIRA 40 MG/0.8 ML PEN [Suspect]
     Indication: CROHN^S DISEASE
     Route: 058
     Dates: start: 20111220
  2. METOPROLOL [Concomitant]
     Indication: CARDIOVASCULAR EVENT PROPHYLAXIS
     Dosage: 25 MG DAILY
  3. BABY ASPIRIN [Concomitant]
     Indication: THROMBOSIS PROPHYLAXIS
     Dosage: 81 MG DAILY
  4. CALCIUM CITRATE [Concomitant]
     Indication: OSTEOPOROSIS
     Dosage: DAILY
  5. MULTIVITAMIN [Concomitant]
     Indication: VITAMIN SUPPLEMENTATION
     Dosage: DAILY
  6. PEPCID OVER THE COUNTER [Concomitant]
     Indication: DYSPEPSIA
     Dosage: 10 MG DAILY
  7. IMODIUM [Concomitant]
     Indication: DIARRHOEA
  8. LATANOPROST [Concomitant]
     Indication: GLAUCOMA
     Dosage: 1 DROP EACH EYE AT NIGHT
     Route: 047
  9. TUMS OVER THE COUNTER [Concomitant]
     Indication: DYSPEPSIA
  10. TYLENOL OVER THE COUNTER [Concomitant]
     Indication: PAIN
  11. TYLENOL OVER THE COUNTER [Concomitant]
     Indication: PAIN
  12. BUTALBITAL [Concomitant]
     Indication: HEADACHE
  13. PROBIOTICS OVER THE COUNTER [Concomitant]
     Indication: CROHN^S DISEASE
     Dosage: DAILY
  14. FLAXSEED OIL [Concomitant]
     Indication: MEDICAL DIET
     Dosage: DAILY
  15. VAGIFEM [Concomitant]
     Indication: VULVOVAGINAL DRYNESS
  16. VITAMIN D [Concomitant]
     Indication: OSTEOPOROSIS
     Dosage: THREE TIMES A WEEK
  17. VITAMIN B12 [Concomitant]
     Indication: PRODUCT USED FOR UNKNOWN INDICATION
     Dosage: ONCE MONTHLY
     Route: 030
  18. SYSTANE [Concomitant]
     Indication: PRODUCT USED FOR UNKNOWN INDICATION
     Dosage: ONE DROP EACH EYE THREE TIMES DAILY
     Route: 047
  19. QUESTRAN [Concomitant]
     Indication: DIARRHOEA
     Dosage: AS NEEDED DAILY

REACTIONS (1)
  - Injection site pain [Not Recovered/Not Resolved]
